FAERS Safety Report 5820219-2 (Version None)
Quarter: 2008Q3

REPORT INFORMATION
  Report Type: 
  Country: None (occurrence: None)
  Receive Date: 20080724
  Receipt Date: 20080723
  Transmission Date: 20090109
  Serious: Yes (Other)
  Sender: FDA-Public Use
  Company Number: PHEH1999US02639

PATIENT
  Sex: Male

DRUGS (4)
  1. PLACEBO PLACEBO [Suspect]
     Indication: LIVER TRANSPLANT
     Dosage: UNK
     Route: 048
     Dates: start: 19981102, end: 19981118
  2. NEORAL [Suspect]
     Indication: LIVER TRANSPLANT
     Dosage: UNSPECIFIED
     Route: 048
     Dates: start: 19981102
  3. PREDNISONE TAB [Suspect]
     Indication: LIVER TRANSPLANT
     Dosage: UNSPECIFIED
     Route: 048
     Dates: start: 19981102
  4. AZATHIOPRINE [Concomitant]
     Indication: LIVER TRANSPLANT

REACTIONS (6)
  - ANOREXIA [None]
  - BILIARY TRACT DISORDER [None]
  - JAUNDICE [None]
  - PRURITUS [None]
  - PSEUDOLYMPHOMA [None]
  - PYREXIA [None]
